FAERS Safety Report 4968739-7 (Version None)
Quarter: 2006Q2

REPORT INFORMATION
  Report Type: 
  Country: None (occurrence: None)
  Receive Date: 20060405
  Receipt Date: 20060323
  Transmission Date: 20061013
  Serious: Yes (Hospitalization)
  Sender: FDA-Public Use
  Company Number: 2005-0008843

PATIENT
  Age: 49 Year
  Sex: Male

DRUGS (6)
  1. HEPSERA (ADENOFOVIR DIPIVOXIL) (10 MG, TABLET) [Suspect]
     Indication: HEPATIC CIRRHOSIS
     Dosage: 10 MG, 1 IN 1 D, ORAL
     Route: 048
     Dates: start: 20040527
  2. HEPSERA (ADENOFOVIR DIPIVOXIL) (10 MG, TABLET) [Suspect]
     Indication: HEPATITIS B
     Dosage: 10 MG, 1 IN 1 D, ORAL
     Route: 048
     Dates: start: 20040527
  3. ZEFRIX (LAMIVUDINE) [Suspect]
     Indication: HEPATIC CIRRHOSIS
     Dosage: 100 MG, ORAL
     Route: 048
     Dates: start: 20020403
  4. SPIRONOLACTONE [Concomitant]
  5. FUROSEMIDE [Concomitant]
  6. AMINOLEBAN EN (AMINOLEBAN EN) [Concomitant]

REACTIONS (5)
  - GASTRIC VARICES [None]
  - HEPATIC ATROPHY [None]
  - HEPATIC CIRRHOSIS [None]
  - HEPATIC NEOPLASM MALIGNANT [None]
  - SPLENOMEGALY [None]
